FAERS Safety Report 24778872 (Version 1)
Quarter: 2024Q4

REPORT INFORMATION
  Report Type: Spontaneous
  Country: FR (occurrence: FR)
  Receive Date: 20241226
  Receipt Date: 20241226
  Transmission Date: 20250115
  Serious: Yes (Death, Other)
  Sender: ALEXION PHARMACEUTICALS
  Company Number: FR-ASTRAZENECA-202412GLO019098FR

PATIENT
  Age: 35 Year

DRUGS (7)
  1. LYNPARZA [Suspect]
     Active Substance: OLAPARIB
     Indication: Malignant melanoma
  2. LYNPARZA [Suspect]
     Active Substance: OLAPARIB
  3. DABRAFENIB [Suspect]
     Active Substance: DABRAFENIB
     Route: 065
  4. DABRAFENIB [Suspect]
     Active Substance: DABRAFENIB
     Route: 065
  5. DABRAFENIB [Suspect]
     Active Substance: DABRAFENIB
     Dosage: 200 MILLIGRAM, QD
     Route: 065
  6. DABRAFENIB [Suspect]
     Active Substance: DABRAFENIB
     Dosage: 200 MILLIGRAM, QD
     Route: 065
  7. TRAMETINIB [Suspect]
     Active Substance: TRAMETINIB

REACTIONS (3)
  - Malignant neoplasm progression [Fatal]
  - Drug resistance [Fatal]
  - BRCA1 gene mutation [Fatal]
